FAERS Safety Report 8337680-4 (Version None)
Quarter: 2012Q2

REPORT INFORMATION
  Report Type: 
  Country: None (occurrence: None)
  Receive Date: 20120504
  Receipt Date: 20120504
  Transmission Date: 20120825
  Serious: Yes (Other)
  Sender: FDA-Public Use
  Company Number: None

PATIENT
  Age: 70 Year
  Sex: Male
  Weight: 90.718 kg

DRUGS (1)
  1. XANAX [Suspect]
     Indication: ANXIETY
     Dosage: |DOSAGETEXT: .25||STRENGTH: .25 X 4 DAY||FREQ: 4||ROUTE: ORAL|
     Route: 048
     Dates: start: 19850114, end: 20110928

REACTIONS (2)
  - BURNING MOUTH SYNDROME [None]
  - DRUG WITHDRAWAL SYNDROME [None]
